FAERS Safety Report 22371774 (Version 13)
Quarter: 2025Q3

REPORT INFORMATION
  Report Type: Report from Study
  Country: US (occurrence: US)
  Receive Date: 20230526
  Receipt Date: 20250924
  Transmission Date: 20251021
  Serious: Yes (Hospitalization, Other)
  Sender: TAKEDA
  Company Number: US-TAKEDA-2023TUS052074

PATIENT
  Sex: Female
  Weight: 86 kg

DRUGS (41)
  1. HUMAN IMMUNOGLOBULIN G [Suspect]
     Active Substance: HUMAN IMMUNOGLOBULIN G
     Indication: Myasthenia gravis
     Dosage: 1000 MILLIGRAM/KILOGRAM, Q3WEEKS
  2. HUMAN IMMUNOGLOBULIN G [Suspect]
     Active Substance: HUMAN IMMUNOGLOBULIN G
  3. HUMAN IMMUNOGLOBULIN G [Suspect]
     Active Substance: HUMAN IMMUNOGLOBULIN G
  4. DIPHENHYDRAMINE HYDROCHLORIDE [Concomitant]
     Active Substance: DIPHENHYDRAMINE HYDROCHLORIDE
  5. HEPARIN [Concomitant]
     Active Substance: HEPARIN SODIUM
  6. CARVEDILOL [Concomitant]
     Active Substance: CARVEDILOL
  7. ACETAMINOPHEN\HYDROCODONE [Concomitant]
     Active Substance: ACETAMINOPHEN\HYDROCODONE
  8. XGEVA [Concomitant]
     Active Substance: DENOSUMAB
  9. FUROSEMIDE [Concomitant]
     Active Substance: FUROSEMIDE
  10. NITROFURANTOIN [Concomitant]
     Active Substance: NITROFURANTOIN
  11. ONDANSETRON HYDROCHLORIDE [Concomitant]
     Active Substance: ONDANSETRON HYDROCHLORIDE
  12. VESICARE [Concomitant]
     Active Substance: SOLIFENACIN SUCCINATE
  13. SUMATRIPTAN SUCCINATE [Concomitant]
     Active Substance: SUMATRIPTAN SUCCINATE
  14. CYANOCOBALAMIN [Concomitant]
     Active Substance: CYANOCOBALAMIN
  15. SODIUM CHLORIDE [Concomitant]
     Active Substance: SODIUM CHLORIDE
  16. EPINEPHRINE [Concomitant]
     Active Substance: EPINEPHRINE
  17. EZETIMIBE [Concomitant]
     Active Substance: EZETIMIBE
  18. GABAPENTIN [Concomitant]
     Active Substance: GABAPENTIN
  19. ATORVASTATIN [Concomitant]
     Active Substance: ATORVASTATIN
  20. DOCUSATE SODIUM [Concomitant]
     Active Substance: DOCUSATE SODIUM
  21. METFORMIN HYDROCHLORIDE [Concomitant]
     Active Substance: METFORMIN HYDROCHLORIDE
  22. NITROGLYCERIN [Concomitant]
     Active Substance: NITROGLYCERIN
  23. PREDNISONE [Concomitant]
     Active Substance: PREDNISONE
  24. RISPERIDONE [Concomitant]
     Active Substance: RISPERIDONE
  25. SODIUM CHLORIDE [Concomitant]
     Active Substance: SODIUM CHLORIDE
  26. CYCLOBENZAPRINE HYDROCHLORIDE [Concomitant]
     Active Substance: CYCLOBENZAPRINE HYDROCHLORIDE
  27. LIDOCAINE\PRILOCAINE [Concomitant]
     Active Substance: LIDOCAINE\PRILOCAINE
  28. MIRTAZAPINE [Concomitant]
     Active Substance: MIRTAZAPINE
  29. ELIQUIS [Concomitant]
     Active Substance: APIXABAN
  30. LISINOPRIL [Concomitant]
     Active Substance: LISINOPRIL
  31. MYRBETRIQ [Concomitant]
     Active Substance: MIRABEGRON
  32. PIROXICAM [Concomitant]
     Active Substance: PIROXICAM
  33. PROCHLORPERAZINE MALEATE [Concomitant]
     Active Substance: PROCHLORPERAZINE MALEATE
  34. PYRIDOSTIGMINE BROMIDE [Concomitant]
     Active Substance: PYRIDOSTIGMINE BROMIDE
  35. PANTOPRAZOLE SODIUM [Concomitant]
     Active Substance: PANTOPRAZOLE SODIUM
  36. BUPROPION [Concomitant]
     Active Substance: BUPROPION
  37. CALCIUM\CHOLECALCIFEROL [Concomitant]
     Active Substance: CALCIUM\CHOLECALCIFEROL
  38. ACETAMINOPHEN [Concomitant]
     Active Substance: ACETAMINOPHEN
  39. ATORVASTATIN CALCIUM [Concomitant]
     Active Substance: ATORVASTATIN CALCIUM
  40. LANTUS SOLOSTAR [Concomitant]
     Active Substance: INSULIN GLARGINE
  41. MINERALS\VITAMINS [Concomitant]
     Active Substance: MINERALS\VITAMINS

REACTIONS (7)
  - Urinary tract infection [Unknown]
  - Haematological infection [Unknown]
  - Myasthenia gravis crisis [Unknown]
  - Atrial fibrillation [Unknown]
  - Syncope [Unknown]
  - Heart rate increased [Unknown]
  - COVID-19 [Unknown]
